FAERS Safety Report 5860235-8 (Version None)
Quarter: 2008Q3

REPORT INFORMATION
  Report Type: 
  Country: None (occurrence: None)
  Receive Date: 20080827
  Receipt Date: 20080821
  Transmission Date: 20090109
  Serious: Yes (Death)
  Sender: FDA-Public Use
  Company Number: JP-GENENTECH-265932

PATIENT
  Age: 85 Year
  Sex: Female

DRUGS (8)
  1. RITUXAN [Suspect]
     Indication: ACQUIRED HAEMOPHILIA
     Dosage: 375 MG/M2, 1/WEEK
     Route: 042
  2. ANTIHEMOPHILIC FACTOR (HUMAN) [Concomitant]
     Indication: COAGULATION FACTOR
  3. NOVOSEVEN [Concomitant]
     Indication: COAGULATION FACTOR
  4. PREDNISOLONE [Concomitant]
     Indication: IMMUNOSUPPRESSION
  5. CYCLOPHOSPHAMIDE [Concomitant]
     Indication: IMMUNOSUPPRESSION
  6. CYCLOSPORINE [Concomitant]
     Indication: IMMUNOSUPPRESSION
  7. HEMOSTATICS [Concomitant]
     Indication: HAEMORRHAGE
  8. BLOOD TRANSFUSION [Concomitant]
     Indication: HAEMORRHAGE

REACTIONS (3)
  - HAEMORRHAGIC DIATHESIS [None]
  - PYELONEPHRITIS [None]
  - SEPSIS [None]
